FAERS Safety Report 4713823-6 (Version None)
Quarter: 2005Q3

REPORT INFORMATION
  Report Type: 
  Country: None (occurrence: None)
  Receive Date: 20050713
  Receipt Date: 20050629
  Transmission Date: 20060218
  Serious: Yes (Other)
  Sender: FDA-Public Use
  Company Number: JP-MERCK-0506USA04250

PATIENT
  Age: 82 Year
  Sex: Male
  Weight: 55 kg

DRUGS (7)
  1. PRIMAXIN [Suspect]
     Indication: CHOLECYSTITIS
     Route: 042
     Dates: start: 20050623, end: 20050624
  2. URSODIOL [Concomitant]
     Route: 048
  3. GASMOTIN [Concomitant]
     Route: 048
  4. ARTIST [Concomitant]
     Indication: HYPERTENSION
     Route: 048
     Dates: start: 20050606
  5. DIART [Concomitant]
     Indication: DIURETIC THERAPY
     Route: 048
     Dates: start: 20050606
  6. HARNAL [Concomitant]
     Indication: URINARY INCONTINENCE
     Route: 048
     Dates: start: 20050606
  7. ALLOPURINOL [Concomitant]
     Indication: HYPERURICAEMIA
     Route: 048
     Dates: start: 20050614

REACTIONS (2)
  - CONVULSION [None]
  - DEPRESSED LEVEL OF CONSCIOUSNESS [None]
